FAERS Safety Report 15661540 (Version 2)
Quarter: 2019Q1

REPORT INFORMATION
  Report Type: Spontaneous
  Country: AU (occurrence: AU)
  Receive Date: 20181127
  Receipt Date: 20190329
  Transmission Date: 20190417
  Serious: Yes (Death, Hospitalization)
  Sender: FDA-Public Use
  Company Number: AU-MYLANLABS-2018M1087637

PATIENT
  Sex: Male

DRUGS (1)
  1. CLOZARIL [Suspect]
     Active Substance: CLOZAPINE
     Indication: SCHIZOPHRENIA
     Dosage: 125 MILLIGRAM
     Route: 048
     Dates: start: 19940707

REACTIONS (3)
  - Gastric cancer [Fatal]
  - Gastrointestinal carcinoma [Fatal]
  - Multiple organ dysfunction syndrome [Fatal]
